FAERS Safety Report 5105537-8 (Version None)
Quarter: 2006Q3

REPORT INFORMATION
  Report Type: 
  Country: None (occurrence: None)
  Receive Date: 20060915
  Receipt Date: 20060911
  Transmission Date: 20061208
  Serious: Yes (Other)
  Sender: FDA-Public Use
  Company Number: US-BRISTOL-MYERS SQUIBB COMPANY-13505813

PATIENT
  Sex: Female

DRUGS (3)
  1. ABILIFY [Suspect]
  2. RISPERDAL [Concomitant]
  3. LAMICTAL [Concomitant]

REACTIONS (1)
  - STEVENS-JOHNSON SYNDROME [None]
